FAERS Safety Report 23696508 (Version 1)
Quarter: 2024Q2

REPORT INFORMATION
  Report Type: Spontaneous
  Country: US (occurrence: None)
  Receive Date: 20240401
  Receipt Date: 20240401
  Transmission Date: 20240716
  Serious: Yes (Hospitalization)
  Sender: FDA-Public Use
  Company Number: None

PATIENT
  Age: 77 Year
  Sex: Female
  Weight: 56.2 kg

DRUGS (1)
  1. CARVYKTI [Suspect]
     Active Substance: CILTACABTAGENE AUTOLEUCEL
     Indication: Plasma cell myeloma
     Dosage: 1DF DOSAGE FORM ONCE INTRAVENOUS?
     Route: 042
     Dates: start: 20240208

REACTIONS (4)
  - Cytokine release syndrome [None]
  - Hyponatraemia [None]
  - Inappropriate antidiuretic hormone secretion [None]
  - Neutropenia [None]

NARRATIVE: CASE EVENT DATE: 20240215
